FAERS Safety Report 23455454 (Version 2)
Quarter: 2024Q1

REPORT INFORMATION
  Report Type: Spontaneous
  Country: BR (occurrence: BR)
  Receive Date: 20240130
  Receipt Date: 20240322
  Transmission Date: 20240410
  Serious: Yes (Other)
  Sender: FDA-Public Use
  Company Number: BR-Merck Healthcare KGaA-2023484074

PATIENT
  Age: 52 Year
  Sex: Female

DRUGS (1)
  1. LEVOTHYROXINE SODIUM [Suspect]
     Active Substance: LEVOTHYROXINE SODIUM
     Indication: Hypothyroidism
     Dosage: FASTING
     Route: 048
     Dates: start: 20231023

REACTIONS (5)
  - Colitis ulcerative [Recovered/Resolved]
  - Gait inability [Recovered/Resolved]
  - Muscle spasms [Recovered/Resolved]
  - Insomnia [Recovered/Resolved]
  - Product formulation issue [Unknown]

NARRATIVE: CASE EVENT DATE: 20231023
